FAERS Safety Report 21233486 (Version 1)
Quarter: 2022Q3

REPORT INFORMATION
  Report Type: Spontaneous
  Country: US (occurrence: US)
  Receive Date: 20220819
  Receipt Date: 20220819
  Transmission Date: 20221026
  Serious: Yes (Other)
  Sender: FDA-Public Use
  Company Number: US-MYLANLABS-2022M1087290

PATIENT
  Age: 9 Year
  Sex: Male

DRUGS (5)
  1. BUDESONIDE [Suspect]
     Active Substance: BUDESONIDE
     Indication: Oesophagitis
     Dosage: 1 MILLIGRAM (VISCOUS)
     Route: 048
  2. LANSOPRAZOLE [Suspect]
     Active Substance: LANSOPRAZOLE
     Indication: Eosinophilic oesophagitis
     Dosage: 30 MILLIGRAM, QD
     Route: 065
  3. BUDESONIDE [Suspect]
     Active Substance: BUDESONIDE
     Indication: Oesophagitis
     Dosage: 9 MILLIGRAM (DELAYED RELEASE)
     Route: 048
  4. FLUTICASONE [Suspect]
     Active Substance: FLUTICASONE
     Indication: Eosinophilic oesophagitis
     Dosage: 44 MICROGRAM, BID (2 PUFFS)
     Route: 048
  5. FLUTICASONE [Suspect]
     Active Substance: FLUTICASONE
     Dosage: 220 MICROGRAM, BID (2 PUFFS)
     Route: 048

REACTIONS (3)
  - Cushingoid [Recovered/Resolved]
  - Drug ineffective for unapproved indication [Unknown]
  - Off label use [Unknown]
